FAERS Safety Report 21847498 (Version 2)
Quarter: 2023Q1

REPORT INFORMATION
  Report Type: Spontaneous
  Country: US (occurrence: US)
  Receive Date: 20230111
  Receipt Date: 20230123
  Transmission Date: 20230418
  Serious: Yes (Other)
  Sender: FDA-Public Use
  Company Number: US-LUPIN PHARMACEUTICALS INC.-2023-00059

PATIENT
  Age: 43 Year
  Sex: Female

DRUGS (4)
  1. LURASIDONE [Suspect]
     Active Substance: LURASIDONE
     Indication: Bipolar disorder
     Dosage: UNK
     Route: 065
  2. LURASIDONE [Suspect]
     Active Substance: LURASIDONE
     Indication: Mania
  3. LURASIDONE [Suspect]
     Active Substance: LURASIDONE
     Indication: Psychotic disorder
  4. LORAZEPAM [Suspect]
     Active Substance: LORAZEPAM
     Indication: Catatonia
     Dosage: UNK
     Route: 065

REACTIONS (2)
  - Drug reaction with eosinophilia and systemic symptoms [Unknown]
  - Off label use [Unknown]
